FAERS Safety Report 4432926-7 (Version None)
Quarter: 2004Q3

REPORT INFORMATION
  Report Type: 
  Country: None (occurrence: None)
  Receive Date: 20040823
  Receipt Date: 20040809
  Transmission Date: 20050211
  Serious: Yes (Other)
  Sender: FDA-Public Use
  Company Number: 2004048216

PATIENT
  Age: 12 Year
  Sex: Male
  Weight: 52 kg

DRUGS (2)
  1. NEURONTIN [Suspect]
     Indication: EPILEPSY
     Dosage: 900 MG (300 MG, 3 IN 1 D), ORAL
     Route: 048
     Dates: start: 20040301, end: 20040325
  2. CARBAMAZEPINE [Concomitant]

REACTIONS (6)
  - AGITATION [None]
  - CONDITION AGGRAVATED [None]
  - DRUG INEFFECTIVE [None]
  - ENCEPHALOPATHY [None]
  - GRAND MAL CONVULSION [None]
  - PSYCHOMOTOR RETARDATION [None]
